FAERS Safety Report 17505672 (Version 1)
Quarter: 2020Q1

REPORT INFORMATION
  Report Type: Spontaneous
  Country: FR (occurrence: FR)
  Receive Date: 20200306
  Receipt Date: 20200306
  Transmission Date: 20200409
  Serious: Yes (Other)
  Sender: FDA-Public Use
  Company Number: FR-US-PROVELL PHARMACEUTICALS LLC-E2B_90075447

PATIENT
  Age: 70 Year
  Sex: Female

DRUGS (4)
  1. VELCADE [Suspect]
     Active Substance: BORTEZOMIB
     Indication: PLASMA CELL MYELOMA
     Dosage: 4 FRIDAYS OUT OF 5
     Route: 058
     Dates: start: 201908
  2. LEVOTHYROX [Suspect]
     Active Substance: LEVOTHYROXINE
     Indication: POST PROCEDURAL HYPOTHYROIDISM
     Dosage: OLD FORMULATION
  3. LEVOTHYROX [Suspect]
     Active Substance: LEVOTHYROXINE
     Dosage: NEW FORMULATION
  4. MAG 2                              /01486821/ [Concomitant]
     Active Substance: MAGNESIUM PIDOLATE
     Indication: PRODUCT USED FOR UNKNOWN INDICATION
     Dosage: VERY RARELY

REACTIONS (6)
  - Plasma cell myeloma [Unknown]
  - Hyporeflexia [Unknown]
  - Dehydration [Unknown]
  - Erythema [Unknown]
  - Feeling abnormal [Unknown]
  - Breast swelling [Unknown]

NARRATIVE: CASE EVENT DATE: 201908
